FAERS Safety Report 8423994-6 (Version None)
Quarter: 2012Q2

REPORT INFORMATION
  Report Type: 
  Country: None (occurrence: None)
  Receive Date: 20120608
  Receipt Date: 20110426
  Transmission Date: 20120825
  Serious: No
  Sender: FDA-Public Use
  Company Number: US-ASTRAZENECA-2011SE24012

PATIENT
  Age: 63 Year
  Sex: Female

DRUGS (2)
  1. PULMICORT FLEXHALER [Suspect]
     Indication: SARCOIDOSIS
     Route: 055
     Dates: start: 20110301
  2. VENTOLIN [Concomitant]

REACTIONS (3)
  - INCORRECT DOSE ADMINISTERED [None]
  - HYPERSENSITIVITY [None]
  - DYSPHONIA [None]
